FAERS Safety Report 11496558 (Version 2)
Quarter: 2015Q4

REPORT INFORMATION
  Report Type: Spontaneous
  Country: JP (occurrence: JP)
  Receive Date: 20150911
  Receipt Date: 20151008
  Transmission Date: 20160304
  Serious: Yes (Hospitalization, Other)
  Sender: FDA-Public Use
  Company Number: JP-ELI_LILLY_AND_COMPANY-JP201507009540

PATIENT
  Age: 33 Year
  Sex: Male
  Weight: 53 kg

DRUGS (6)
  1. DECADRON [Suspect]
     Active Substance: DEXAMETHASONE
     Indication: PROPHYLAXIS
     Dosage: 9.9 MG, DAILY
     Route: 042
     Dates: start: 20150702, end: 20150713
  2. GRANISETRON [Suspect]
     Active Substance: GRANISETRON
     Indication: PROPHYLAXIS
     Dosage: 3 MG, DAILY
     Route: 042
     Dates: start: 20150702, end: 20150713
  3. FAMOTIDINE. [Suspect]
     Active Substance: FAMOTIDINE
     Indication: PROPHYLAXIS
     Dosage: 20 MG, DAILY
     Route: 042
     Dates: start: 20150702, end: 20150713
  4. CYRAMZA [Suspect]
     Active Substance: RAMUCIRUMAB
     Indication: GASTRIC CANCER
     Dosage: 400 MG, OTHER
     Route: 042
     Dates: start: 20150702, end: 20150713
  5. PACLITAXEL. [Suspect]
     Active Substance: PACLITAXEL
     Indication: GASTRIC CANCER
     Dosage: 100 MG, OTHER
     Route: 042
     Dates: start: 20150702, end: 20150713
  6. RESTAMIN /00000402/ [Suspect]
     Active Substance: DIPHENHYDRAMINE HYDROCHLORIDE
     Indication: PROPHYLAXIS
     Dosage: 50 MG, DAILY
     Route: 048
     Dates: start: 20150702, end: 20150713

REACTIONS (2)
  - Ileus [Not Recovered/Not Resolved]
  - Ascites [Unknown]

NARRATIVE: CASE EVENT DATE: 20150713
